FAERS Safety Report 17500555 (Version 1)
Quarter: 2020Q1

REPORT INFORMATION
  Report Type: Spontaneous
  Country: AU (occurrence: AU)
  Receive Date: 20200305
  Receipt Date: 20200305
  Transmission Date: 20200409
  Serious: Yes (Other)
  Sender: FDA-Public Use
  Company Number: AU-ACCORD-174824

PATIENT
  Age: 60 Year
  Sex: Male

DRUGS (2)
  1. LIPIODOL [Suspect]
     Active Substance: ETHIODIZED OIL
     Indication: HEPATOCELLULAR CARCINOMA
     Dosage: BOTH FEEDING ARTERIES ON TWO OCCASIONS 5 MONTHS APART )
  2. CISPLATIN. [Suspect]
     Active Substance: CISPLATIN
     Indication: HEPATOCELLULAR CARCINOMA
     Dosage: ...FEEDING ARTERIES ON TWO OCCASIONS 5 MONTHS APART)

REACTIONS (2)
  - Off label use [Unknown]
  - Diaphragmatic paralysis [Unknown]
